FAERS Safety Report 4721859-4 (Version None)
Quarter: 2005Q3

REPORT INFORMATION
  Report Type: 
  Country: None (occurrence: None)
  Receive Date: 20050721
  Receipt Date: 20050513
  Transmission Date: 20060218
  Serious: Yes (Other)
  Sender: FDA-Public Use
  Company Number: US-BRISTOL-MYERS SQUIBB COMPANY-12968004

PATIENT
  Sex: Male

DRUGS (7)
  1. COUMADIN [Suspect]
     Indication: ATRIAL FIBRILLATION
     Dosage: START 7-8 YRS AGO;ALTERNATE 2.5 + 5MG; HELD X 7 DAYS; HELD ANOTHER 2 DAYS; HELD ADDITIONAL 2 DAYS.
  2. ATENOLOL [Concomitant]
  3. ALLOPURINOL [Concomitant]
  4. DIOVAN [Concomitant]
  5. DILTIAZEM HCL [Concomitant]
  6. AMIODARONE [Concomitant]
  7. FUROSEMIDE [Concomitant]

REACTIONS (2)
  - BLOOD URINE PRESENT [None]
  - INTERNATIONAL NORMALISED RATIO FLUCTUATION [None]
